FAERS Safety Report 6800647-9 (Version None)
Quarter: 2010Q2

REPORT INFORMATION
  Report Type: 
  Country: None (occurrence: None)
  Receive Date: 20100625
  Receipt Date: 20100625
  Transmission Date: 20101027
  Serious: Yes (Hospitalization)
  Sender: FDA-Public Use
  Company Number: None

PATIENT
  Age: 52 Year
  Sex: Female
  Weight: 59.8748 kg

DRUGS (17)
  1. ALIMTA [Suspect]
     Indication: NON-SMALL CELL LUNG CANCER RECURRENT
     Dosage: 500MG/M2 X BSA = 835MG
     Dates: start: 20100602, end: 20100602
  2. ASPIRIN [Concomitant]
  3. LIPITOR [Concomitant]
  4. SYMBICORT [Concomitant]
  5. INHA [Concomitant]
  6. ALLEGRA [Concomitant]
  7. FLONASE [Concomitant]
  8. ADVAIR DISKUS 100/50 [Concomitant]
  9. ATIVAN [Concomitant]
  10. COZAAR [Concomitant]
  11. MEGACE [Concomitant]
  12. REGLAN [Concomitant]
  13. SINGULAIR [Concomitant]
  14. ZOFRAN [Concomitant]
  15. PROTONIX [Concomitant]
  16. COMPAZINE [Concomitant]
  17. SPIRIVA [Concomitant]

REACTIONS (3)
  - ABDOMINAL PAIN [None]
  - DYSPNOEA [None]
  - NAUSEA [None]
